FAERS Safety Report 24783452 (Version 1)
Quarter: 2024Q4

REPORT INFORMATION
  Report Type: Spontaneous
  Country: US (occurrence: US)
  Receive Date: 20241227
  Receipt Date: 20241227
  Transmission Date: 20250115
  Serious: Yes (Life-Threatening, Other)
  Sender: SANOFI AVENTIS
  Company Number: US-SANOFI-02347713

PATIENT
  Age: 57 Year
  Sex: Female

DRUGS (1)
  1. FERRLECIT [Suspect]
     Active Substance: SODIUM FERRIC GLUCONATE COMPLEX
     Indication: Mineral supplementation
     Dosage: 20 ML, QW

REACTIONS (14)
  - Anaphylactic reaction [Unknown]
  - Hypersensitivity [Unknown]
  - Post-traumatic stress disorder [Unknown]
  - Heart rate increased [Unknown]
  - Abdominal pain upper [Unknown]
  - Hyperhidrosis [Unknown]
  - Lip swelling [Unknown]
  - Dyspnoea [Unknown]
  - Tremor [Unknown]
  - Injury [Unknown]
  - Palpitations [Unknown]
  - Vomiting [Unknown]
  - Diarrhoea [Unknown]
  - Wrong technique in product usage process [Unknown]

NARRATIVE: CASE EVENT DATE: 20230221
